FAERS Safety Report 6766104-3 (Version None)
Quarter: 2010Q2

REPORT INFORMATION
  Report Type: 
  Country: None (occurrence: None)
  Receive Date: 20100611
  Receipt Date: 20100601
  Transmission Date: 20101027
  Serious: Yes (Other)
  Sender: FDA-Public Use
  Company Number: PHHY2010JP32009

PATIENT
  Age: 72 Year
  Sex: Female

DRUGS (1)
  1. FLUVASTATIN [Suspect]
     Indication: HYPERCHOLESTEROLAEMIA
     Dosage: 20 MG, UNK
     Route: 048
     Dates: start: 20100506, end: 20100517

REACTIONS (2)
  - CONVULSION [None]
  - MUSCLE SPASMS [None]
